FAERS Safety Report 5809785-0 (Version None)
Quarter: 2008Q3

REPORT INFORMATION
  Report Type: 
  Country: None (occurrence: None)
  Receive Date: 20080715
  Receipt Date: 20080710
  Transmission Date: 20090109
  Serious: Yes (Other)
  Sender: FDA-Public Use
  Company Number: US-ASTRAZENECA-2008UW13805

PATIENT
  Age: 72 Year
  Sex: Female

DRUGS (1)
  1. ATENOLOL [Suspect]
     Route: 048

REACTIONS (3)
  - CHEST DISCOMFORT [None]
  - GAIT DISTURBANCE [None]
  - SOMNOLENCE [None]
